FAERS Safety Report 8011475-3 (Version None)
Quarter: 2011Q4

REPORT INFORMATION
  Report Type: 
  Country: None (occurrence: None)
  Receive Date: 20111228
  Receipt Date: 20111220
  Transmission Date: 20120403
  Serious: No
  Sender: FDA-Public Use
  Company Number: US-PFIZER INC-2011309589

PATIENT
  Sex: Female
  Weight: 50.794 kg

DRUGS (9)
  1. FISH OIL [Concomitant]
  2. LEVOTHYROXINE [Concomitant]
     Indication: HYPOTHYROIDISM
     Dosage: 0.05 UG, DAILY
  3. LIPITOR [Concomitant]
     Dosage: 80 MG, DAILY
  4. THERMACARE LOWER BACK + HIP [Suspect]
     Indication: BACK PAIN
     Dosage: UNK
     Dates: start: 20111101, end: 20110101
  5. LISINOPRIL [Concomitant]
     Indication: HYPERTENSION
     Dosage: 5 MG, DAILY
  6. PLAVIX [Concomitant]
     Dosage: 75 MG, DAILY
  7. FLECTOR [Suspect]
     Indication: BACK PAIN
     Dosage: UNK
     Dates: start: 20111208, end: 20111208
  8. KLONOPIN [Concomitant]
     Indication: SLEEP DISORDER
     Dosage: 0.5 MG, DAILY
  9. OMEPRAZOLE [Concomitant]
     Indication: HYPERCHLORHYDRIA
     Dosage: 20 MG, DAILY

REACTIONS (3)
  - RASH [None]
  - DEVICE INEFFECTIVE [None]
  - ERYTHEMA [None]
